FAERS Safety Report 19131448 (Version 2)
Quarter: 2022Q2

REPORT INFORMATION
  Report Type: Spontaneous
  Country: CA (occurrence: CA)
  Receive Date: 20210413
  Receipt Date: 20220608
  Transmission Date: 20220721
  Serious: Yes (Other)
  Sender: FDA-Public Use
  Company Number: CA-CIPHER-2021-CA-000785

PATIENT
  Age: 19 Year
  Sex: Female

DRUGS (36)
  1. TRAMADOL HYDROCHLORIDE [Suspect]
     Active Substance: TRAMADOL HYDROCHLORIDE
     Indication: Complex regional pain syndrome
     Dosage: DOSE UNKNOWN
     Route: 065
  2. CODEINE [Suspect]
     Active Substance: CODEINE
     Indication: Complex regional pain syndrome
     Route: 065
  3. DESIPRAMINE [Suspect]
     Active Substance: DESIPRAMINE
     Indication: Complex regional pain syndrome
     Route: 065
  4. DEXTROMETHORPHAN [Suspect]
     Active Substance: DEXTROMETHORPHAN
     Indication: Complex regional pain syndrome
     Route: 065
  5. DICLOFENAC [Suspect]
     Active Substance: DICLOFENAC
     Indication: Product used for unknown indication
     Route: 065
  6. EMLA [Suspect]
     Active Substance: LIDOCAINE\PRILOCAINE
     Indication: Complex regional pain syndrome
     Route: 065
  7. EUCALYPTUS OIL [Suspect]
     Active Substance: EUCALYPTUS OIL
     Indication: Complex regional pain syndrome
     Route: 065
  8. FENTANYL [Suspect]
     Active Substance: FENTANYL
     Indication: Complex regional pain syndrome
     Route: 062
  9. GABAPENTIN [Suspect]
     Active Substance: GABAPENTIN
     Indication: Complex regional pain syndrome
     Route: 065
  10. HYDROMORPHONE [Suspect]
     Active Substance: HYDROMORPHONE
     Indication: Complex regional pain syndrome
     Route: 065
  11. IBUPROFEN [Suspect]
     Active Substance: IBUPROFEN
     Indication: Complex regional pain syndrome
     Route: 065
  12. ACETAMINOPHEN [Suspect]
     Active Substance: ACETAMINOPHEN
     Indication: Complex regional pain syndrome
     Dosage: DOSE UNKNOWN
     Route: 065
  13. KETAMINE [Suspect]
     Active Substance: KETAMINE
     Indication: Complex regional pain syndrome
     Route: 048
  14. KETOROLAC [Suspect]
     Active Substance: KETOROLAC TROMETHAMINE
     Indication: Complex regional pain syndrome
     Route: 065
  15. LAVENDER OIL [Suspect]
     Active Substance: LAVENDER OIL
     Indication: Complex regional pain syndrome
     Route: 065
  16. LIDOCAINE [Suspect]
     Active Substance: LIDOCAINE
     Indication: Complex regional pain syndrome
     Route: 065
  17. MEMANTINE [Suspect]
     Active Substance: MEMANTINE
     Indication: Complex regional pain syndrome
     Route: 065
  18. METHADONE HYDROCHLORIDE [Suspect]
     Active Substance: METHADONE HYDROCHLORIDE
     Indication: Complex regional pain syndrome
     Route: 065
  19. MEXILETINE [Suspect]
     Active Substance: MEXILETINE
     Indication: Complex regional pain syndrome
     Route: 065
  20. MORPHINE [Suspect]
     Active Substance: MORPHINE
     Indication: Complex regional pain syndrome
     Route: 065
  21. NAPROXEN [Suspect]
     Active Substance: NAPROXEN
     Indication: Complex regional pain syndrome
     Route: 065
  22. NORTRIPTYLINE [Suspect]
     Active Substance: NORTRIPTYLINE
     Indication: Complex regional pain syndrome
     Route: 065
  23. AMITRIPTYLINE [Concomitant]
     Active Substance: AMITRIPTYLINE
     Indication: Complex regional pain syndrome
     Dosage: DOESE UNKNOWN
     Route: 065
  24. OXCARBAZEPINE [Suspect]
     Active Substance: OXCARBAZEPINE
     Indication: Complex regional pain syndrome
     Route: 065
  25. OXYCODONE HYDROCHLORIDE [Suspect]
     Active Substance: OXYCODONE HYDROCHLORIDE
     Indication: Complex regional pain syndrome
     Dosage: 80 MG EVERY 8 HOURS
     Route: 065
  26. PREGABALIN [Concomitant]
     Active Substance: PREGABALIN
     Indication: Complex regional pain syndrome
     Route: 065
  27. HERBALS [Suspect]
     Active Substance: HERBALS
     Indication: Complex regional pain syndrome
     Route: 065
  28. DULOXETINE [Suspect]
     Active Substance: DULOXETINE
     Indication: Complex regional pain syndrome
     Route: 065
  29. TOPIRAMATE [Suspect]
     Active Substance: TOPIRAMATE
     Indication: Complex regional pain syndrome
     Route: 065
  30. VENLAFAXINE [Suspect]
     Active Substance: VENLAFAXINE HYDROCHLORIDE
     Indication: Complex regional pain syndrome
     Route: 065
  31. ASPIRIN [Suspect]
     Active Substance: ASPIRIN
     Indication: Complex regional pain syndrome
     Dosage: DOSE UNKNOWN
     Route: 065
  32. BUPROPION [Suspect]
     Active Substance: BUPROPION
     Indication: Complex regional pain syndrome
     Route: 065
  33. CAPSAICIN [Suspect]
     Active Substance: CAPSAICIN
     Indication: Complex regional pain syndrome
     Route: 065
  34. CELECOXIB [Concomitant]
     Active Substance: CELECOXIB
     Indication: Complex regional pain syndrome
     Route: 065
  35. CITALOPRAM [Suspect]
     Active Substance: CITALOPRAM HYDROBROMIDE
     Indication: Complex regional pain syndrome
     Route: 065
  36. CLONIDINE [Suspect]
     Active Substance: CLONIDINE
     Indication: Complex regional pain syndrome
     Route: 065

REACTIONS (5)
  - Immune thrombocytopenia [Unknown]
  - Therapy non-responder [Unknown]
  - Weight increased [Unknown]
  - Drug withdrawal syndrome [Unknown]
  - Thrombocytopenic purpura [Unknown]
